FAERS Safety Report 5794910-0 (Version None)
Quarter: 2008Q2

REPORT INFORMATION
  Report Type: 
  Country: None (occurrence: None)
  Receive Date: 20080627
  Receipt Date: 20080627
  Transmission Date: 20081010
  Serious: Yes (Other)
  Sender: FDA-Public Use
  Company Number: None

PATIENT
  Age: 46 Year
  Weight: 72.5 kg

DRUGS (2)
  1. INTEGRILIN [Suspect]
     Indication: PERCUTANEOUS CORONARY INTERVENTION
     Dosage: 12.4MG X 2 DOSES IV BOLUS
     Route: 040
     Dates: start: 20080624, end: 20080624
  2. INTEGRILIN [Suspect]
     Indication: ACUTE MYOCARDIAL INFARCTION
     Dosage: 11ML/HR-75MG/100ML- X 18 HOURS IV DRIP
     Route: 041
     Dates: start: 20080624, end: 20080625

REACTIONS (8)
  - ATRIOVENTRICULAR BLOCK COMPLETE [None]
  - CHEST PAIN [None]
  - ELECTROCARDIOGRAM ST SEGMENT DEPRESSION [None]
  - ELECTROCARDIOGRAM ST SEGMENT ELEVATION [None]
  - HYPOXIA [None]
  - PROCEDURAL COMPLICATION [None]
  - PRODUCTIVE COUGH [None]
  - PULMONARY ALVEOLAR HAEMORRHAGE [None]
